FAERS Safety Report 6133369-0 (Version None)
Quarter: 2009Q1

REPORT INFORMATION
  Report Type: 
  Country: None (occurrence: None)
  Receive Date: 20090326
  Receipt Date: 20090316
  Transmission Date: 20090719
  Serious: Yes (Hospitalization)
  Sender: FDA-Public Use
  Company Number: US-ELI_LILLY_AND_COMPANY-US200903003862

PATIENT
  Sex: Female

DRUGS (3)
  1. FORTEO [Suspect]
     Indication: OSTEOPOROSIS
     Dates: start: 20080701, end: 20080801
  2. FORTEO [Suspect]
     Dates: start: 20090315
  3. PLAVIX [Concomitant]

REACTIONS (4)
  - EMOTIONAL DISTRESS [None]
  - FEAR [None]
  - FEELING ABNORMAL [None]
  - VERTEBROPLASTY [None]
